FAERS Safety Report 6811842 (Version 5)
Quarter: 2016Q1

REPORT INFORMATION
  Report Type: Spontaneous
  Country: US (occurrence: US)
  Receive Date: 20081114
  Receipt Date: 20160104
  Transmission Date: 20160526
  Serious: Yes (Death, Hospitalization, Other)
  Sender: FDA-Public Use
  Company Number: US-BAYER-200837676NA

PATIENT
  Age: 73 Year
  Sex: Male

DRUGS (34)
  1. TRASYLOL [Suspect]
     Active Substance: APROTININ
     Indication: AORTIC VALVE REPLACEMENT
     Dosage: 2 MILLION KIU LOADING DOSE, THEN 500,000 KIU/HOUR.
     Route: 042
     Dates: start: 20060609, end: 20060609
  2. HEPARIN [Concomitant]
     Active Substance: HEPARIN SODIUM
     Dosage: DRIP, 5,000-31,000 UNITS
     Route: 042
     Dates: start: 20060609, end: 20060706
  3. MORPHINE [Concomitant]
     Active Substance: MORPHINE
     Dosage: 2-6MG
     Route: 042
     Dates: start: 20060609, end: 20060612
  4. SIMVASTATIN. [Concomitant]
     Active Substance: SIMVASTATIN
     Dosage: 40 MG AT BEDTIME
     Route: 048
     Dates: start: 20040607
  5. COREG [Concomitant]
     Active Substance: CARVEDILOL
     Dosage: 3.125-6.25 MG TWICE DAILY
     Route: 048
     Dates: start: 20060605
  6. HYDRALAZINE [Concomitant]
     Active Substance: HYDRALAZINE HYDROCHLORIDE
     Dosage: 12.5 MG, TID
     Route: 048
     Dates: start: 20060606, end: 20070131
  7. DIGOXIN [DIGOXIN] [Concomitant]
     Active Substance: DIGOXIN
     Dosage: 0.25 MG, QD
     Route: 048
     Dates: start: 20060611, end: 20060613
  8. INSULIN [INSULIN] [Concomitant]
     Active Substance: INSULIN NOS
     Dosage: DRIP
     Route: 042
     Dates: start: 20060609, end: 20060611
  9. FORADIL [Concomitant]
     Active Substance: FORMOTEROL FUMARATE
     Dosage: 12 MCG TWICE DAILY
     Route: 045
     Dates: start: 20060523
  10. ALBUMIN [Concomitant]
     Active Substance: ALBUMIN (HUMAN)
     Dosage: 500 CC
     Route: 042
     Dates: start: 20060609
  11. CORDARONE [Concomitant]
     Active Substance: AMIODARONE HYDROCHLORIDE
     Dosage: 150-900 MG, 1 MG/MINUTE
     Route: 042
     Dates: start: 20060609, end: 200610
  12. DOBUTREX [Concomitant]
     Active Substance: DOBUTAMINE HYDROCHLORIDE
     Dosage: 1-5 MCG/KG/MINUTE
     Route: 042
     Dates: start: 20060609, end: 20060613
  13. CARDENE [Concomitant]
     Active Substance: NICARDIPINE HYDROCHLORIDE
     Dosage: 25 MG, UNK
     Route: 042
     Dates: start: 20060609, end: 20060612
  14. METOPROLOL TARTRATE. [Concomitant]
     Active Substance: METOPROLOL TARTRATE
     Dosage: 25-150 MG DAILY TO TWICE DAILY
     Route: 048
     Dates: start: 20010806, end: 20060614
  15. NIPRIDE [Concomitant]
     Active Substance: SODIUM NITROPRUSSIDE
     Dosage: DRIP
     Route: 042
     Dates: start: 20060609, end: 20060610
  16. COLCHICINE. [Concomitant]
     Active Substance: COLCHICINE
     Indication: GOUT
     Dosage: UNK
     Dates: start: 20071113
  17. PACKED RED BLOOD CELLS [Concomitant]
     Active Substance: HUMAN RED BLOOD CELL
     Dosage: 2 U, UNK
     Dates: start: 20060620
  18. ANCEF [Concomitant]
     Active Substance: CEFAZOLIN SODIUM
     Dosage: 1 GM EVERY 8HRS
     Route: 042
     Dates: start: 20060609
  19. AMLODIPINE [Concomitant]
     Active Substance: AMLODIPINE BESYLATE
     Dosage: 5-10 MG DAILY
     Route: 048
     Dates: start: 1994
  20. DIGOXIN [DIGOXIN] [Concomitant]
     Active Substance: DIGOXIN
     Dosage: 0.25 MG, QD
     Route: 042
     Dates: start: 20060611, end: 20060613
  21. CRYOPRECIPITATES [Concomitant]
     Dosage: 3000 ML, UNK
     Dates: start: 20060609
  22. NITROGLYCERIN. [Concomitant]
     Active Substance: NITROGLYCERIN
     Dosage: 50-100 X 3
     Route: 042
     Dates: start: 20060609
  23. FELODIPINE. [Concomitant]
     Active Substance: FELODIPINE
     Dosage: 10 MG, QD
     Route: 048
     Dates: start: 19980928
  24. PROVENTIL [Concomitant]
     Active Substance: ALBUTEROL
     Indication: DYSPNOEA
     Dosage: 90 MCG, 2 PUFFS EVERY FOUR HOURS AS NEEDED
     Route: 045
     Dates: start: 200604
  25. DUONEB [Concomitant]
     Active Substance: ALBUTEROL SULFATE\IPRATROPIUM BROMIDE
     Dosage: 2.5/0.5MG/3ML
     Route: 045
     Dates: start: 20060604
  26. COUMADIN [Concomitant]
     Active Substance: WARFARIN SODIUM
     Dosage: 5 MG, QD
     Route: 048
     Dates: start: 20060612, end: 20060616
  27. PULMICORT TURBUHALER [Concomitant]
     Active Substance: BUDESONIDE
     Dosage: 0.5 MG, UNK
     Route: 045
     Dates: start: 20060609
  28. PLATELETS [Concomitant]
     Active Substance: HUMAN PLATELET, ALLOGENIC
     Dosage: 1 U, UNK
     Dates: start: 20060620
  29. EPINEPHRINE. [Concomitant]
     Active Substance: EPINEPHRINE
     Dosage: 1-8MG
     Route: 042
     Dates: start: 20060609, end: 20060609
  30. ACETYLSALICYLIC ACID (} 100 MG) [Concomitant]
     Active Substance: ASPIRIN
     Dosage: 81-325 MG DAILY TO EVERY OTHER DAY
     Route: 048
     Dates: start: 19980928
  31. ADVAIR HFA [Concomitant]
     Active Substance: FLUTICASONE PROPIONATE\SALMETEROL XINAFOATE
     Dosage: 50/250 MCG TWICE
     Route: 045
     Dates: start: 20011121
  32. MOMETASONE FUROATE. [Concomitant]
     Active Substance: MOMETASONE FUROATE
     Dosage: 220 MCG, 1-2 PUFFS AT BEDTIME TO TWICE DAILY
     Route: 045
     Dates: start: 20060523
  33. ADVIL [CHLORPHENAMINE MALEATE,IBUPROFEN,PSEUDOEPHEDRINE HYDROCHLOR [Concomitant]
     Dosage: UNK UNK, PRN
     Route: 048
     Dates: start: 20050822
  34. INDOMETHACIN. [Concomitant]
     Active Substance: INDOMETHACIN
     Indication: GOUT
     Dosage: UNK
     Dates: start: 20071113

REACTIONS (16)
  - Renal injury [Unknown]
  - Pain [Unknown]
  - Swelling [None]
  - Injury [Unknown]
  - Malaise [None]
  - General physical health deterioration [Unknown]
  - Vomiting [None]
  - Haemorrhage [None]
  - Renal failure [Unknown]
  - Unevaluable event [Unknown]
  - Anxiety [Unknown]
  - Emotional distress [Unknown]
  - Emotional disorder [Unknown]
  - Nephropathy [Fatal]
  - Stress [Unknown]
  - Gastrointestinal haemorrhage [None]

NARRATIVE: CASE EVENT DATE: 20060612
